FAERS Safety Report 25142971 (Version 3)
Quarter: 2025Q2

REPORT INFORMATION
  Report Type: Report from Study
  Country: CA (occurrence: CA)
  Receive Date: 20250401
  Receipt Date: 20250501
  Transmission Date: 20250717
  Serious: Yes (Death, Other)
  Sender: ABBVIE
  Company Number: CA-ABBVIE-6205108

PATIENT
  Age: 73 Year
  Sex: Female

DRUGS (6)
  1. BOTOX [Suspect]
     Active Substance: ONABOTULINUMTOXINA
     Indication: Migraine
     Route: 030
     Dates: start: 20220527, end: 20220527
  2. BOTOX [Suspect]
     Active Substance: ONABOTULINUMTOXINA
     Indication: Migraine
     Route: 030
     Dates: start: 20250220, end: 20250320
  3. CAMBIA [Concomitant]
     Active Substance: DICLOFENAC POTASSIUM
     Indication: Product used for unknown indication
  4. LEVOPHED [Suspect]
     Active Substance: NOREPINEPHRINE BITARTRATE
     Indication: Product used for unknown indication
     Route: 065
  5. VASOPRESSIN [Suspect]
     Active Substance: VASOPRESSIN
     Indication: Product used for unknown indication
     Route: 065
  6. DOBUTAMINE [Suspect]
     Active Substance: DOBUTAMINE HYDROCHLORIDE
     Indication: Product used for unknown indication
     Route: 065

REACTIONS (21)
  - Death [Fatal]
  - Cough [Unknown]
  - Headache [Unknown]
  - Unresponsive to stimuli [Unknown]
  - Hypothermia [Unknown]
  - Hypotension [Unknown]
  - Mental disorder [Unknown]
  - Multiple organ dysfunction syndrome [Unknown]
  - Drug ineffective [Unknown]
  - Pulseless electrical activity [Unknown]
  - Malaise [Unknown]
  - Pneumonia [Unknown]
  - Hypocalcaemia [Unknown]
  - Hypoglycaemia [Unknown]
  - Septic shock [Unknown]
  - Hypokalaemia [Unknown]
  - Acute respiratory failure [Unknown]
  - Hypercapnia [Unknown]
  - Acute kidney injury [Unknown]
  - Hypertransaminasaemia [Unknown]
  - Accidental overdose [Unknown]

NARRATIVE: CASE EVENT DATE: 20250324
